FAERS Safety Report 8588182-1 (Version None)
Quarter: 2012Q3

REPORT INFORMATION
  Report Type: 
  Country: None (occurrence: None)
  Receive Date: 20120813
  Receipt Date: 20120808
  Transmission Date: 20120928
  Serious: No
  Sender: FDA-Public Use
  Company Number: US-BAYER-2012-081333

PATIENT
  Age: 31 Year
  Sex: Female
  Weight: 90.703 kg

DRUGS (4)
  1. TOPAMAX [Concomitant]
     Dosage: 200 MG, UNK
  2. BETASERON [Suspect]
     Dosage: .25 MG, QOD
     Route: 058
  3. MIRENA [Concomitant]
     Route: 015
  4. PROVIGIL [Concomitant]
     Dosage: 200 MG, UNK

REACTIONS (4)
  - BLOOD PRESSURE DIASTOLIC INCREASED [None]
  - INFLUENZA LIKE ILLNESS [None]
  - PAIN [None]
  - PYREXIA [None]
